FAERS Safety Report 8021500-1 (Version None)
Quarter: 2011Q4

REPORT INFORMATION
  Report Type: 
  Country: None (occurrence: None)
  Receive Date: 20111230
  Receipt Date: 20111222
  Transmission Date: 20120403
  Serious: Yes (Hospitalization, Other)
  Sender: FDA-Public Use
  Company Number: JPI-P-005521

PATIENT
  Age: 76 Year
  Sex: Male
  Weight: 87.5442 kg

DRUGS (8)
  1. ALLOPURINOL [Concomitant]
  2. MODAFINIL [Concomitant]
  3. METOPROLOL SUCCINATE [Concomitant]
  4. CLOPIDOGREL BISULFATE [Concomitant]
  5. XYREM [Suspect]
     Indication: CATAPLEXY
     Dosage: 7.5 GM (3.75 GM, 2 IN 1 D), ORAL
     Route: 048
  6. LISINOPRIL [Concomitant]
  7. FISH OIL [Concomitant]
  8. XYREM [Suspect]
     Indication: CATAPLEXY
     Dosage: 5 GM (2.5 GM, 2 IN 1 D), ORAL
     Route: 048
     Dates: start: 20070301

REACTIONS (2)
  - CORONARY ARTERY OCCLUSION [None]
  - ATRIAL FIBRILLATION [None]
